FAERS Safety Report 8522725-9 (Version None)
Quarter: 2012Q3

REPORT INFORMATION
  Report Type: 
  Country: None (occurrence: None)
  Receive Date: 20120719
  Receipt Date: 20120711
  Transmission Date: 20120928
  Serious: Yes (Death, Hospitalization)
  Sender: FDA-Public Use
  Company Number: GR-GLAXOSMITHKLINE-B0815067A

PATIENT
  Age: 61 Year
  Sex: Male

DRUGS (3)
  1. AVELOX [Concomitant]
     Dates: start: 20120611, end: 20120614
  2. VOTRIENT [Suspect]
     Indication: RENAL CANCER
     Route: 048
     Dates: start: 20111201, end: 20120612
  3. MESULID [Concomitant]
     Dates: start: 20111201, end: 20120610

REACTIONS (1)
  - HEPATIC FAILURE [None]
